FAERS Safety Report 8073945-1 (Version None)
Quarter: 2012Q1

REPORT INFORMATION
  Report Type: 
  Country: None (occurrence: None)
  Receive Date: 20120126
  Receipt Date: 20120119
  Transmission Date: 20120608
  Serious: Yes (Hospitalization)
  Sender: FDA-Public Use
  Company Number: JP-PFIZER INC-2011292586

PATIENT
  Age: 13 Year
  Sex: Male

DRUGS (2)
  1. UNASYN [Suspect]
     Indication: ANTIBIOTIC PROPHYLAXIS
     Dosage: 0.75 G, DAILY
     Route: 042
     Dates: start: 20110101
  2. CLARITHROMYCIN [Suspect]
     Indication: PNEUMONIA MYCOPLASMAL
     Dosage: UNK
     Dates: start: 20110101

REACTIONS (2)
  - PNEUMONIA [None]
  - RASH [None]
